FAERS Safety Report 8723545 (Version 2)
Quarter: 2012Q4

REPORT INFORMATION
  Report Type: 
  Country: US (occurrence: US)
  Receive Date: 20120814
  Receipt Date: 20121207
  Transmission Date: 20130627
  Serious: Yes (Hospitalization, Other)
  Sender: FDA-Public Use
  Company Number: CHPA2012US017833

PATIENT
  Age: 51 Year
  Sex: Male

DRUGS (4)
  1. VOLTAREN GEL [Suspect]
     Indication: ARTHRITIS
     Dosage: UNK, QID
     Route: 061
     Dates: start: 201201
  2. FLONASE [Concomitant]
  3. METFORMIN [Concomitant]
  4. DRUG THERAPY NOS [Concomitant]

REACTIONS (3)
  - Skin ulcer [Not Recovered/Not Resolved]
  - Hyperkeratosis [Not Recovered/Not Resolved]
  - Drug administered at inappropriate site [Unknown]
